FAERS Safety Report 5003384-9 (Version None)
Quarter: 2006Q1

REPORT INFORMATION
  Report Type: 
  Country: None (occurrence: None)
  Receive Date: 20060317
  Receipt Date: 20050422
  Transmission Date: 20060701
  Serious: Yes (Other)
  Sender: FDA-Public Use
  Company Number: 200513440US

PATIENT
  Sex: Female

DRUGS (1)
  1. CLOMID [Suspect]
     Dosage: 50 MG

REACTIONS (3)
  - CYST [None]
  - ENDOMETRIOSIS [None]
  - PAIN [None]
